FAERS Safety Report 17827626 (Version 4)
Quarter: 2020Q3

REPORT INFORMATION
  Report Type: Report from Study
  Country: None (occurrence: US)
  Receive Date: 20200527
  Receipt Date: 20200821
  Transmission Date: 20201102
  Serious: Yes (Hospitalization, Other)
  Sender: FDA-Public Use
  Company Number: US-ABBVIE-20P-163-3419854-00

PATIENT
  Age: 78 Year
  Sex: Male
  Weight: 141 kg

DRUGS (3)
  1. IMBRUVICA [Suspect]
     Active Substance: IBRUTINIB
     Indication: CHRONIC LYMPHOCYTIC LEUKAEMIA
     Route: 048
     Dates: start: 20190628
  2. IMBRUVICA [Suspect]
     Active Substance: IBRUTINIB
     Route: 048
     Dates: start: 201906
  3. IMBRUVICA [Suspect]
     Active Substance: IBRUTINIB
     Route: 048
     Dates: start: 2020

REACTIONS (3)
  - Knee arthroplasty [Unknown]
  - Peripheral swelling [Unknown]
  - Joint swelling [Unknown]

NARRATIVE: CASE EVENT DATE: 202005
